FAERS Safety Report 25803221 (Version 1)
Quarter: 2025Q3

REPORT INFORMATION
  Report Type: Spontaneous
  Country: US (occurrence: None)
  Receive Date: 20250913
  Receipt Date: 20250913
  Transmission Date: 20251021
  Serious: Yes (Hospitalization)
  Sender: FDA-CTU
  Company Number: None

PATIENT
  Sex: Female

DRUGS (1)
  1. CUVITRU [Suspect]
     Active Substance: HUMAN IMMUNOGLOBULIN G
     Indication: Blood immunoglobulin G decreased
     Dosage: OTHER STRENGTH : 10GM/50ML;?OTHER FREQUENCY : WEEKLY;?
     Route: 058
     Dates: start: 20250211

REACTIONS (2)
  - Influenza [None]
  - Pneumonia [None]
